FAERS Safety Report 7478922-7 (Version None)
Quarter: 2011Q2

REPORT INFORMATION
  Report Type: 
  Country: None (occurrence: None)
  Receive Date: 20110511
  Receipt Date: 20110511
  Transmission Date: 20111010
  Serious: No
  Sender: FDA-Public Use
  Company Number: None

PATIENT
  Age: 45 Year
  Sex: Female
  Weight: 75.7507 kg

DRUGS (2)
  1. BUPROPION HCL [Suspect]
     Indication: ANXIETY
     Dosage: 200 MG 1 PO
     Route: 048
     Dates: start: 20110416, end: 20110418
  2. BUPROPION HCL [Suspect]
     Indication: ANXIETY
     Dosage: 200 MG 1 PO
     Route: 048
     Dates: start: 20110415, end: 20110417

REACTIONS (5)
  - ANXIETY [None]
  - CONDITION AGGRAVATED [None]
  - DRUG INEFFECTIVE [None]
  - PRODUCT QUALITY ISSUE [None]
  - WEIGHT INCREASED [None]
